FAERS Safety Report 6445288-0 (Version None)
Quarter: 2009Q4

REPORT INFORMATION
  Report Type: 
  Country: None (occurrence: None)
  Receive Date: 20091116
  Receipt Date: 20091105
  Transmission Date: 20100525
  Serious: No
  Sender: FDA-Public Use
  Company Number: 2009012164

PATIENT

DRUGS (1)
  1. FENTORA [Suspect]
     Indication: CANCER PAIN
     Dosage: BU
     Route: 002

REACTIONS (1)
  - DRUG PRESCRIBING ERROR [None]
